FAERS Safety Report 24719913 (Version 1)
Quarter: 2024Q4

REPORT INFORMATION
  Report Type: Report from Study
  Country: US (occurrence: US)
  Receive Date: 20241211
  Receipt Date: 20241211
  Transmission Date: 20250114
  Serious: Yes (Hospitalization, Other)
  Sender: ABBVIE
  Company Number: US-ABBVIE-6015621

PATIENT
  Age: 66 Year
  Sex: Male
  Weight: 113.39 kg

DRUGS (1)
  1. HUMIRA [Suspect]
     Active Substance: ADALIMUMAB
     Indication: Crohn^s disease
     Dosage: CITRATE FREE FORM STRENGTH: 40 MG
     Route: 058
     Dates: start: 20220506, end: 20241205

REACTIONS (11)
  - Osteoarthritis [Recovered/Resolved]
  - Pulmonary mass [Not Recovered/Not Resolved]
  - Joint range of motion decreased [Recovering/Resolving]
  - Staphylococcal infection [Recovered/Resolved]
  - Joint stiffness [Not Recovered/Not Resolved]
  - Decreased appetite [Recovered/Resolved]
  - Complication associated with device [Recovered/Resolved]
  - Dyspnoea [Recovered/Resolved]
  - Fatigue [Recovered/Resolved]
  - Pulmonary embolism [Recovered/Resolved]
  - Pulmonary fibrosis [Not Recovered/Not Resolved]

NARRATIVE: CASE EVENT DATE: 20230201
